FAERS Safety Report 5835769-2 (Version None)
Quarter: 2008Q3

REPORT INFORMATION
  Report Type: 
  Country: None (occurrence: None)
  Receive Date: 20080806
  Receipt Date: 20080724
  Transmission Date: 20090109
  Serious: Yes (Other)
  Sender: FDA-Public Use
  Company Number: US-BAYER-200810148BCC

PATIENT
  Age: 42 Year
  Sex: Female

DRUGS (2)
  1. ASPIRIN [Suspect]
     Indication: PROPHYLAXIS
     Dates: start: 20071001
  2. PLAVIX [Suspect]
     Indication: PROPHYLAXIS
     Dosage: UNIT DOSE: 75 MG
     Dates: start: 20071001

REACTIONS (4)
  - ARTHRALGIA [None]
  - HEADACHE [None]
  - MOBILITY DECREASED [None]
  - MUSCLE SPASMS [None]
